FAERS Safety Report 9714417 (Version 1)
Quarter: 2013Q4

REPORT INFORMATION
  Report Type: Spontaneous
  Country: US (occurrence: US)
  Receive Date: 20131126
  Receipt Date: 20131126
  Transmission Date: 20140711
  Serious: No
  Sender: FDA-Public Use
  Company Number: US-BIOGENIDEC-2013BI073665

PATIENT
  Age: 52 Year
  Sex: Female
  Weight: 106 kg

DRUGS (32)
  1. TECFIDERA [Suspect]
     Indication: MULTIPLE SCLEROSIS
     Route: 048
  2. HYDROCO/APAP TAB 10 [Concomitant]
     Indication: PRODUCT USED FOR UNKNOWN INDICATION
  3. VALIUM TAB [Concomitant]
     Indication: PRODUCT USED FOR UNKNOWN INDICATION
  4. ALBUTEROL TAB [Concomitant]
  5. MULTIVITAMIN CAP [Concomitant]
     Indication: PRODUCT USED FOR UNKNOWN INDICATION
  6. CALCIUM 500 TAB+D [Concomitant]
  7. VITAMIN D CHW [Concomitant]
  8. ETODOLAC ER TAB [Concomitant]
  9. ASA LOW DOSE TAB EC [Concomitant]
  10. REQUIP TAB [Concomitant]
     Indication: PRODUCT USED FOR UNKNOWN INDICATION
  11. REQUIP TAB [Concomitant]
     Indication: PRODUCT USED FOR UNKNOWN INDICATION
  12. METFORMIN TAB ER [Concomitant]
  13. OMEPRAZOLE CAP [Concomitant]
     Indication: PRODUCT USED FOR UNKNOWN INDICATION
  14. OMEPRAZOLE CAP [Concomitant]
     Indication: PRODUCT USED FOR UNKNOWN INDICATION
  15. SINGULAIR TAB [Concomitant]
  16. VESICARE TAB [Concomitant]
     Indication: PRODUCT USED FOR UNKNOWN INDICATION
  17. CARISOPRODOL TAB [Concomitant]
  18. CITALOPRAM TAB [Concomitant]
     Indication: PRODUCT USED FOR UNKNOWN INDICATION
  19. ASPIRIN [Concomitant]
     Indication: PRODUCT USED FOR UNKNOWN INDICATION
  20. ALENDRONATE [Concomitant]
     Indication: PRODUCT USED FOR UNKNOWN INDICATION
  21. AMOXICILLIN [Concomitant]
     Indication: PRODUCT USED FOR UNKNOWN INDICATION
  22. CALTRATE 600 TAB + D [Concomitant]
     Indication: PRODUCT USED FOR UNKNOWN INDICATION
  23. ETODOLAC [Concomitant]
     Indication: PRODUCT USED FOR UNKNOWN INDICATION
  24. ALBUTEROL AER [Concomitant]
     Indication: PRODUCT USED FOR UNKNOWN INDICATION
  25. HYDROMET [Concomitant]
     Indication: PRODUCT USED FOR UNKNOWN INDICATION
  26. LOSARTAN POT [Concomitant]
     Indication: PRODUCT USED FOR UNKNOWN INDICATION
  27. MELOXICAM [Concomitant]
     Indication: PRODUCT USED FOR UNKNOWN INDICATION
  28. METFORMIN [Concomitant]
     Indication: PRODUCT USED FOR UNKNOWN INDICATION
  29. NORTRIPTYLIN [Concomitant]
     Indication: PRODUCT USED FOR UNKNOWN INDICATION
  30. PROAIR HFA [Concomitant]
     Indication: PRODUCT USED FOR UNKNOWN INDICATION
  31. TIZANIDINE [Concomitant]
     Indication: PRODUCT USED FOR UNKNOWN INDICATION
  32. XOPENEX HFA AER [Concomitant]
     Indication: PRODUCT USED FOR UNKNOWN INDICATION

REACTIONS (3)
  - Increased tendency to bruise [Unknown]
  - White blood cell count increased [Unknown]
  - Abdominal pain upper [Unknown]
